FAERS Safety Report 21529901 (Version 3)
Quarter: 2022Q4

REPORT INFORMATION
  Report Type: Spontaneous
  Country: US (occurrence: US)
  Receive Date: 20221031
  Receipt Date: 20221216
  Transmission Date: 20230112
  Serious: Yes (Hospitalization)
  Sender: FDA-Public Use
  Company Number: US-PFIZER INC-PV202200092466

PATIENT
  Age: 50 Year
  Sex: Female

DRUGS (1)
  1. XELJANZ XR [Suspect]
     Active Substance: TOFACITINIB CITRATE
     Indication: Rheumatoid arthritis
     Dosage: 11 MG, DAILY
     Route: 048
     Dates: start: 201803

REACTIONS (9)
  - Colitis [Unknown]
  - Disease recurrence [Unknown]
  - Product dose omission issue [Unknown]
  - Arthritis [Recovered/Resolved]
  - Pain [Recovered/Resolved]
  - Blood cholesterol increased [Unknown]
  - Pain in extremity [Recovered/Resolved]
  - Depression [Unknown]
  - Discouragement [Unknown]

NARRATIVE: CASE EVENT DATE: 20190101
